FAERS Safety Report 8421607-0 (Version None)
Quarter: 2012Q2

REPORT INFORMATION
  Report Type: 
  Country: None (occurrence: None)
  Receive Date: 20120608
  Receipt Date: 20120605
  Transmission Date: 20120825
  Serious: Yes (Hospitalization)
  Sender: FDA-Public Use
  Company Number: FR-PFIZER INC-2012129732

PATIENT
  Age: 53 Year
  Sex: Female

DRUGS (31)
  1. TAZOBACTAM [Suspect]
     Dosage: UNK
     Route: 042
     Dates: start: 20120501, end: 20120502
  2. VITAMIN D [Concomitant]
  3. CANCIDAS [Concomitant]
     Dosage: UNK
     Route: 042
     Dates: start: 20120429
  4. CELLCEPT [Concomitant]
  5. PERINDOPRIL ERBUMINE [Concomitant]
  6. ARANESP [Concomitant]
  7. TAZOBACTAM [Suspect]
     Dosage: UNK
     Route: 042
     Dates: start: 20120424, end: 20120425
  8. VANCOMYCIN HCL [Suspect]
     Dosage: UNK
     Route: 042
     Dates: start: 20120424, end: 20120424
  9. AMIKACIN [Concomitant]
     Dosage: UNK
     Route: 042
     Dates: start: 20120404, end: 20120409
  10. ERYTHROMYCIN [Concomitant]
     Dosage: UNK
     Dates: start: 20120514
  11. LEXOMIL [Concomitant]
  12. CANCIDAS [Concomitant]
     Indication: CANDIDIASIS
     Dosage: UNK
     Route: 042
     Dates: start: 20120416, end: 20120420
  13. ZYVOX [Concomitant]
     Dosage: UNK
     Dates: start: 20120424, end: 20120424
  14. LASIX [Concomitant]
  15. TAZOBACTAM [Suspect]
     Dosage: UNK
     Route: 042
     Dates: start: 20120404, end: 20120408
  16. NEORAL [Concomitant]
  17. IRBESARTAN [Concomitant]
  18. FLUCONAZOLE [Suspect]
     Dosage: UNK
     Route: 042
     Dates: start: 20120421, end: 20120421
  19. ROCEPHIN [Suspect]
     Dosage: UNK
     Route: 042
     Dates: start: 20120408, end: 20120412
  20. ROCEPHIN [Suspect]
     Dosage: UNK
     Route: 042
     Dates: start: 20120425, end: 20120429
  21. ERYTHROMYCIN [Concomitant]
     Dosage: UNK
     Dates: start: 20120406, end: 20120427
  22. PREDNISOLONE [Concomitant]
  23. TENORMIN [Concomitant]
  24. LERCANIDIPINE [Concomitant]
  25. ZYVOX [Concomitant]
     Dosage: UNK
     Dates: start: 20120504, end: 20120511
  26. RENAGEL [Concomitant]
  27. AMIKACIN [Concomitant]
     Dosage: UNK
     Route: 042
     Dates: start: 20120426, end: 20120504
  28. ZOCOR [Concomitant]
  29. NEXIUM [Concomitant]
  30. CINACALCET [Concomitant]
  31. UN-ALFA [Concomitant]

REACTIONS (13)
  - HUMAN HERPES VIRUS 8 TEST POSITIVE [None]
  - DRUG RASH WITH EOSINOPHILIA AND SYSTEMIC SYMPTOMS [None]
  - BLOOD TRIGLYCERIDES INCREASED [None]
  - INFLAMMATION [None]
  - HERPES SIMPLEX SEROLOGY POSITIVE [None]
  - RENAL FAILURE ACUTE [None]
  - CYTOMEGALOVIRUS TEST POSITIVE [None]
  - AGRANULOCYTOSIS [None]
  - BONE MARROW DISORDER [None]
  - SEPTIC SHOCK [None]
  - HUMAN HERPES VIRUS 6 SEROLOGY POSITIVE [None]
  - BONE MARROW NECROSIS [None]
  - CONTINUOUS HAEMODIAFILTRATION [None]
